FAERS Safety Report 12118628 (Version 1)
Quarter: 2016Q1

REPORT INFORMATION
  Report Type: Spontaneous
  Country: US (occurrence: None)
  Receive Date: 20160225
  Receipt Date: 20160225
  Transmission Date: 20160526
  Serious: Yes (Other)
  Sender: FDA-Public Use
  Company Number: None

PATIENT
  Age: 64 Year
  Sex: Male
  Weight: 106.6 kg

DRUGS (3)
  1. ADVIL [Concomitant]
     Active Substance: IBUPROFEN
  2. DULERA [Suspect]
     Active Substance: FORMOTEROL FUMARATE DIHYDRATE\MOMETASONE FUROATE
     Indication: CHRONIC OBSTRUCTIVE PULMONARY DISEASE
     Dosage: 2 PUFFS TWICE A DAY TWICE DAILY INHALATION
     Route: 055
     Dates: start: 20140228, end: 20160224
  3. ONE A DAY [Concomitant]

REACTIONS (2)
  - Dyspnoea [None]
  - Product packaging quantity issue [None]

NARRATIVE: CASE EVENT DATE: 20160224
